FAERS Safety Report 16334481 (Version 1)
Quarter: 2019Q2

REPORT INFORMATION
  Report Type: Spontaneous
  Country: IN (occurrence: IN)
  Receive Date: 20190520
  Receipt Date: 20190520
  Transmission Date: 20190711
  Serious: Yes (Death)
  Sender: FDA-Public Use
  Company Number: PHHY2019IN115244

PATIENT
  Age: 2 Month
  Sex: Female

DRUGS (2)
  1. FLUCONAZOLE. [Suspect]
     Active Substance: FLUCONAZOLE
     Indication: FUNGAL INFECTION
     Dosage: 3 MG/KG, QD
     Route: 042
  2. CIPROFLOXACIN. [Suspect]
     Active Substance: CIPROFLOXACIN
     Indication: PNEUMONIA
     Dosage: 10 MG/KG, TID
     Route: 042

REACTIONS (7)
  - Seizure [Fatal]
  - Hyponatraemia [Fatal]
  - Haemorrhage [Fatal]
  - Hypotension [Fatal]
  - Ill-defined disorder [Fatal]
  - Generalised oedema [Fatal]
  - Petechiae [Fatal]
